FAERS Safety Report 9699063 (Version 2)
Quarter: 2013Q4

REPORT INFORMATION
  Report Type: Spontaneous
  Country: US (occurrence: US)
  Receive Date: 20131120
  Receipt Date: 20131120
  Transmission Date: 20140711
  Serious: Yes (Hospitalization)
  Sender: FDA-Public Use
  Company Number: US-TMC-CABO-13003151

PATIENT
  Age: 43 Year
  Sex: Female

DRUGS (12)
  1. COMETRIQ [Suspect]
     Indication: THYROID CANCER
     Dosage: 100 MG, QD
     Route: 048
     Dates: start: 20130807, end: 20130808
  2. COMETRIQ [Suspect]
     Dosage: 100 MG, QD
     Route: 048
     Dates: start: 20130811, end: 20130829
  3. COMETRIQ [Suspect]
     Dosage: 60 MG, QD
     Route: 048
     Dates: start: 20130830
  4. ANTIHYPERTENSIVES [Suspect]
  5. HYZAAR [Suspect]
     Dosage: 50/12.5
  6. NORVASC [Suspect]
     Dosage: 10 UNK, QD
  7. FENTANYL [Concomitant]
     Dosage: 25 UNK, UNK
  8. PRILOSEC [Concomitant]
     Dosage: 20 UNK, UNK
  9. ZOFRAN [Concomitant]
     Dosage: 4 G, PRN
  10. TARGIN [Concomitant]
  11. BENTYL [Concomitant]
  12. SYNTHROID [Concomitant]
     Dosage: 150 UNK, UNK

REACTIONS (7)
  - Syncope [Recovered/Resolved]
  - Hypotension [Recovered/Resolved]
  - Stomatitis [Unknown]
  - Fatigue [Unknown]
  - Nausea [Unknown]
  - Vomiting [Unknown]
  - Decreased appetite [Unknown]
